FAERS Safety Report 9531484 (Version 1)
Quarter: 2013Q3

REPORT INFORMATION
  Report Type: Spontaneous
  Country: US (occurrence: US)
  Receive Date: 20130918
  Receipt Date: 20130918
  Transmission Date: 20140515
  Serious: No
  Sender: FDA-Public Use
  Company Number: US-BAYER-2013-112337

PATIENT
  Age: 68 Year
  Sex: Male
  Weight: 111 kg

DRUGS (7)
  1. ALEVE LIQUID GELS [Suspect]
     Indication: PAIN
     Dosage: 1 DF, BID
     Route: 048
     Dates: start: 201309
  2. ALEVE TABLET [Suspect]
     Indication: PAIN
     Dosage: 2 DF, BID
     Route: 048
     Dates: end: 201309
  3. VENLAFAXINE [Concomitant]
  4. SIMVASTATIN [Concomitant]
  5. OCUVITE [ASCORBIC ACID,RETINOL,TOCOPHEROL] [Concomitant]
  6. FISH OIL [Concomitant]
  7. CETIRIZINE [Concomitant]

REACTIONS (3)
  - Drug effect incomplete [None]
  - Incorrect drug administration duration [None]
  - Extra dose administered [None]
